FAERS Safety Report 8173753-7 (Version None)
Quarter: 2012Q1

REPORT INFORMATION
  Report Type: 
  Country: None (occurrence: None)
  Receive Date: 20120227
  Receipt Date: 20120215
  Transmission Date: 20120608
  Serious: Yes (Death, Hospitalization)
  Sender: FDA-Public Use
  Company Number: 130109

PATIENT
  Age: 54 Year
  Sex: Male

DRUGS (1)
  1. CLINDAMYCIN PHOSPHATE [Suspect]
     Indication: TOXOPLASMOSIS

REACTIONS (6)
  - BLINDNESS UNILATERAL [None]
  - OPHTHALMOPLEGIA [None]
  - PANCYTOPENIA [None]
  - EXOPHTHALMOS [None]
  - EYELID PTOSIS [None]
  - ZYGOMYCOSIS [None]
